FAERS Safety Report 8390696-4 (Version None)
Quarter: 2012Q2

REPORT INFORMATION
  Report Type: 
  Country: None (occurrence: None)
  Receive Date: 20120529
  Receipt Date: 20120523
  Transmission Date: 20120825
  Serious: Yes (Hospitalization)
  Sender: FDA-Public Use
  Company Number: PHHY2012IT044174

PATIENT
  Age: 70 Year
  Sex: Female

DRUGS (2)
  1. PACLITAXEL [Concomitant]
  2. CARBOPLATIN [Suspect]
     Dosage: UNK
     Dates: start: 20120515

REACTIONS (2)
  - BLOOD PRESSURE INCREASED [None]
  - HYPERHIDROSIS [None]
